FAERS Safety Report 18572929 (Version 1)
Quarter: 2020Q4

REPORT INFORMATION
  Report Type: Spontaneous
  Country: US (occurrence: US)
  Receive Date: 20201203
  Receipt Date: 20201203
  Transmission Date: 20210114
  Serious: No
  Sender: FDA-Public Use
  Company Number: US-009507513-2011USA009309

PATIENT
  Sex: Female

DRUGS (3)
  1. ACTINOMYCIN C3 [Concomitant]
     Active Substance: CACTINOMYCIN
     Indication: EMBRYONAL RHABDOMYOSARCOMA
  2. TEMODAR [Suspect]
     Active Substance: TEMOZOLOMIDE
     Indication: EMBRYONAL RHABDOMYOSARCOMA
  3. VINCRISTINE [Concomitant]
     Active Substance: VINCRISTINE
     Indication: EMBRYONAL RHABDOMYOSARCOMA

REACTIONS (2)
  - Off label use [Unknown]
  - Product use issue [Unknown]
